FAERS Safety Report 20582212 (Version 1)
Quarter: 2022Q1

REPORT INFORMATION
  Report Type: Spontaneous
  Country: US (occurrence: None)
  Receive Date: 20220310
  Receipt Date: 20220310
  Transmission Date: 20220424
  Serious: Yes (Other)
  Sender: FDA-Public Use
  Company Number: None

PATIENT
  Age: 69 Year
  Sex: Female

DRUGS (20)
  1. KISQALI [Suspect]
     Active Substance: RIBOCICLIB
     Indication: Breast cancer
     Dosage: FREQUENCY : DAILY;?
     Dates: start: 20220114
  2. ELIQUIS [Concomitant]
     Active Substance: APIXABAN
  3. VITAMIN B12 [Concomitant]
     Active Substance: CYANOCOBALAMIN
  4. DIPHENHYDRAMINE HYDROCHLORIDE\LIDOCAINE HYDROCHLORIDE\NYSTATIN [Concomitant]
     Active Substance: DIPHENHYDRAMINE HYDROCHLORIDE\LIDOCAINE HYDROCHLORIDE\NYSTATIN
  5. CHOLESTYRAMINE [Concomitant]
     Active Substance: CHOLESTYRAMINE
  6. LOMOTIL [Concomitant]
     Active Substance: ATROPINE SULFATE\DIPHENOXYLATE HYDROCHLORIDE
  7. EXEMESTANE [Concomitant]
     Active Substance: EXEMESTANE
  8. FENTANYL [Concomitant]
     Active Substance: FENTANYL
  9. FOLIC ACID [Concomitant]
     Active Substance: FOLIC ACID
  10. GABAPENTIN [Concomitant]
     Active Substance: GABAPENTIN
  11. IRON [Concomitant]
     Active Substance: IRON
  12. MEGESTROL [Concomitant]
     Active Substance: MEGESTROL
  13. MELATONIN [Concomitant]
     Active Substance: MELATONIN
  14. MAGNESIUM [Concomitant]
     Active Substance: MAGNESIUM
  15. VITAMINS [Concomitant]
     Active Substance: VITAMINS
  16. imoodium [Concomitant]
  17. OXYQUINOLINE SULFATE [Concomitant]
     Active Substance: OXYQUINOLINE SULFATE
  18. PANTOPRAZOLE [Concomitant]
     Active Substance: PANTOPRAZOLE
  19. TRIAMCINOLONE [Concomitant]
     Active Substance: TRIAMCINOLONE
  20. VITAMIN D [Concomitant]
     Active Substance: VITAMIN D NOS

REACTIONS (2)
  - White blood cell count decreased [None]
  - Neutrophil count decreased [None]

NARRATIVE: CASE EVENT DATE: 20220310
